FAERS Safety Report 4807743-6 (Version None)
Quarter: 2005Q4

REPORT INFORMATION
  Report Type: 
  Country: None (occurrence: None)
  Receive Date: 20051019
  Receipt Date: 20050916
  Transmission Date: 20060501
  Serious: Yes (Hospitalization)
  Sender: FDA-Public Use
  Company Number: 2005RR-00790

PATIENT
  Age: 60 Year

DRUGS (2)
  1. IBUPROFEN TABLETS [Suspect]
     Dosage: 400 MG, TID, ORAL
     Route: 048
     Dates: start: 20050831, end: 20050905
  2. CODEINE PHOSPHATE AND ACETAMINOPHEN [Concomitant]

REACTIONS (1)
  - DUODENAL ULCER PERFORATION [None]
